FAERS Safety Report 17622033 (Version 5)
Quarter: 2021Q3

REPORT INFORMATION
  Report Type: Spontaneous
  Country: JP (occurrence: JP)
  Receive Date: 20200403
  Receipt Date: 20210812
  Transmission Date: 20211014
  Serious: Yes (Life-Threatening, Hospitalization, Other)
  Sender: FDA-Public Use
  Company Number: JP-PFIZER INC-2020136208

PATIENT
  Age: 54 Year
  Sex: Female
  Weight: 77.5 kg

DRUGS (6)
  1. ETIZOLAM [Concomitant]
     Active Substance: ETIZOLAM
     Indication: SUICIDE ATTEMPT
     Dosage: 4 MG, UNK
     Route: 048
  2. BROTIZOLAM [Concomitant]
     Active Substance: BROTIZOLAM
     Indication: SUICIDE ATTEMPT
     Dosage: 0.75 MG, UNK
     Route: 048
  3. OLMESARTAN [Suspect]
     Active Substance: OLMESARTAN
     Indication: SUICIDE ATTEMPT
     Dosage: 340 MG, UNK
     Route: 048
  4. OLMESARTAN [Suspect]
     Active Substance: OLMESARTAN
     Dosage: 20 MG, 1X/DAY
     Route: 048
  5. AMLODIPINE BESILATE [Suspect]
     Active Substance: AMLODIPINE BESYLATE
     Indication: SUICIDE ATTEMPT
     Dosage: 345 MG, UNK
     Route: 048
  6. AMLODIPINE BESILATE [Suspect]
     Active Substance: AMLODIPINE BESYLATE
     Indication: HYPERTENSION
     Dosage: 5 MG, 1X/DAY
     Route: 048

REACTIONS (9)
  - Intentional overdose [Recovered/Resolved]
  - Mental status changes [Recovered/Resolved]
  - Shock [Recovering/Resolving]
  - Distributive shock [Recovered/Resolved]
  - Metabolic acidosis [Recovered/Resolved]
  - Overdose [Unknown]
  - Hypotension [Recovered/Resolved]
  - Toxicity to various agents [Recovered/Resolved]
  - Altered state of consciousness [Recovering/Resolving]
